FAERS Safety Report 7545210-X (Version None)
Quarter: 2011Q2

REPORT INFORMATION
  Report Type: 
  Country: None (occurrence: None)
  Receive Date: 20110614
  Receipt Date: 20110531
  Transmission Date: 20111010
  Serious: Yes (Other)
  Sender: FDA-Public Use
  Company Number: CA-JNJFOC-20110601259

PATIENT
  Sex: Female
  Weight: 44 kg

DRUGS (10)
  1. REMICADE [Suspect]
     Indication: RHEUMATOID ARTHRITIS
     Route: 042
     Dates: start: 20031127
  2. RANITIDINE [Concomitant]
  3. SOFLAX [Concomitant]
     Route: 048
  4. HYDRALAZINE HCL [Concomitant]
  5. HYDROXYZINE [Concomitant]
     Route: 048
  6. SYNTHROID [Concomitant]
     Route: 048
  7. FUROSEMIDE [Concomitant]
     Route: 048
  8. VITAMIN D [Concomitant]
     Route: 048
  9. METOPROLOL [Concomitant]
     Route: 048
  10. REMICADE [Suspect]
     Route: 042
     Dates: start: 20110406

REACTIONS (1)
  - RENAL FAILURE [None]
